FAERS Safety Report 6459770-3 (Version None)
Quarter: 2009Q4

REPORT INFORMATION
  Report Type: 
  Country: None (occurrence: None)
  Receive Date: 20091128
  Receipt Date: 20090929
  Transmission Date: 20100525
  Serious: No
  Sender: FDA-Public Use
  Company Number: US-AMGEN-KDL366862

PATIENT
  Sex: Female
  Weight: 65 kg

DRUGS (5)
  1. ENBREL [Suspect]
     Indication: DRUG USE FOR UNKNOWN INDICATION
     Route: 058
  2. METHOTREXATE [Concomitant]
  3. ACTIVELLA [Concomitant]
  4. VITAMIN D [Concomitant]
  5. FOLIC ACID [Concomitant]

REACTIONS (1)
  - PAIN [None]
